FAERS Safety Report 18139018 (Version 1)
Quarter: 2020Q3

REPORT INFORMATION
  Report Type: Spontaneous
  Country: US (occurrence: US)
  Receive Date: 20200811
  Receipt Date: 20200811
  Transmission Date: 20201103
  Serious: Yes (Hospitalization)
  Sender: FDA-Public Use
  Company Number: None

PATIENT
  Age: 74 Year
  Sex: Female

DRUGS (19)
  1. POT CHLORIDE [Concomitant]
     Active Substance: POTASSIUM CHLORIDE
  2. PRAZOSIN. [Concomitant]
     Active Substance: PRAZOSIN
  3. SODIUM BICAR [Concomitant]
  4. FUROSEMIDE. [Concomitant]
     Active Substance: FUROSEMIDE
  5. CLOPIDOGREL [Suspect]
     Active Substance: CLOPIDOGREL BISULFATE
  6. VITAMIN E [Concomitant]
     Active Substance: .ALPHA.-TOCOPHEROL
  7. TYLENOL [Concomitant]
     Active Substance: ACETAMINOPHEN
  8. BUSPIRONE [Concomitant]
     Active Substance: BUSPIRONE HYDROCHLORIDE
  9. NITROGLYCERINE [Concomitant]
     Active Substance: NITROGLYCERIN
  10. REPATHA [Suspect]
     Active Substance: EVOLOCUMAB
     Indication: CORONARY ARTERY DISEASE
     Route: 058
     Dates: start: 20190102
  11. VITAMIN C [Concomitant]
     Active Substance: ASCORBIC ACID
  12. CARBATROL [Concomitant]
     Active Substance: CARBAMAZEPINE
  13. ALBUTEROL. [Concomitant]
     Active Substance: ALBUTEROL
  14. VENLAFAXINE [Concomitant]
     Active Substance: VENLAFAXINE HYDROCHLORIDE
  15. ZYRTEC [Concomitant]
     Active Substance: CETIRIZINE HYDROCHLORIDE
  16. ISOSORB MONO [Concomitant]
     Active Substance: ISOSORBIDE MONONITRATE
  17. AMLOD/OLMESA [Concomitant]
  18. TRAZODONE [Concomitant]
     Active Substance: TRAZODONE HYDROCHLORIDE
  19. OMEPRAZOLE. [Concomitant]
     Active Substance: OMEPRAZOLE

REACTIONS (1)
  - Therapy interrupted [None]

NARRATIVE: CASE EVENT DATE: 20200808
